FAERS Safety Report 6100461-6 (Version None)
Quarter: 2009Q1

REPORT INFORMATION
  Report Type: 
  Country: None (occurrence: None)
  Receive Date: 20090226
  Receipt Date: 20090213
  Transmission Date: 20090719
  Serious: Yes (Hospitalization)
  Sender: FDA-Public Use
  Company Number: 2009PL000054

PATIENT
  Age: 81 Year
  Sex: Male

DRUGS (13)
  1. ZYLOPRIM [Suspect]
     Dosage: 300 MG; QD;
  2. MERCAPTOPURINE [Suspect]
     Indication: CHEMOTHERAPY
     Dosage: 100 MG; QD; PO
     Route: 048
  3. WARFARIN SODIUM [Suspect]
     Indication: DISEASE RECURRENCE
     Dosage: 5 MG; QD;
  4. WARFARIN SODIUM [Suspect]
     Indication: EMBOLISM
     Dosage: 5 MG; QD;
  5. DILTIAZEM [Concomitant]
  6. MORPHINE SULFATE [Concomitant]
  7. OXYCODONE HCL [Concomitant]
  8. ACETAMINOPHEN [Concomitant]
  9. DOCUSATE SODIUM [Concomitant]
  10. TEMAZEPAM [Concomitant]
  11. MILK OF MAGNESIA [Concomitant]
  12. BRIMONIDINE TARTRATE [Concomitant]
  13. TIMOLOL EYE DROP [Concomitant]

REACTIONS (8)
  - CONDITION AGGRAVATED [None]
  - DRUG INTERACTION [None]
  - FEBRILE NEUTROPENIA [None]
  - INTERNATIONAL NORMALISED RATIO DECREASED [None]
  - PULMONARY EMBOLISM [None]
  - SUPRAVENTRICULAR TACHYCARDIA [None]
  - THERAPEUTIC RESPONSE DECREASED [None]
  - THROMBOCYTOPENIA [None]
